FAERS Safety Report 22757373 (Version 2)
Quarter: 2024Q2

REPORT INFORMATION
  Report Type: Spontaneous
  Country: IT (occurrence: IT)
  Receive Date: 20230727
  Receipt Date: 20240403
  Transmission Date: 20240716
  Serious: Yes (Hospitalization)
  Sender: FDA-Public Use
  Company Number: None

PATIENT
  Age: 81 Year
  Sex: Female

DRUGS (7)
  1. LEVETIRACETAM [Suspect]
     Active Substance: LEVETIRACETAM
     Indication: Epilepsy
     Dosage: 250 MG, 2X/DAY
     Route: 048
     Dates: start: 20230626, end: 20230714
  2. FUROSEMIDE [Concomitant]
     Active Substance: FUROSEMIDE
     Dosage: 25 MG, DAILY
     Route: 048
  3. LANSOPRAZOLO EG [Concomitant]
     Dosage: 1 DF, DAILY
     Route: 048
  4. BUDESONIDE\FORMOTEROL\GLYCOPYRRONIUM [Concomitant]
     Active Substance: BUDESONIDE\FORMOTEROL\GLYCOPYRRONIUM
     Dosage: 2 DF, DAILY
     Route: 055
  5. ERYTHROPOIETIN [Concomitant]
     Active Substance: ERYTHROPOIETIN
     Dosage: UNK
  6. ACIDO ACETILSALICILICO EG [Concomitant]
     Dosage: 100 MG, DAILY
     Route: 048
  7. AMLODIPINA EG [Concomitant]
     Dosage: 5 MG, DAILY

REACTIONS (3)
  - Hallucinations, mixed [Recovered/Resolved]
  - Loss of consciousness [Recovered/Resolved]
  - Confusional state [Recovered/Resolved]

NARRATIVE: CASE EVENT DATE: 20230708
